FAERS Safety Report 11566094 (Version 3)
Quarter: 2015Q4

REPORT INFORMATION
  Report Type: Report from Study
  Country: DE (occurrence: DE)
  Receive Date: 20150929
  Receipt Date: 20151209
  Transmission Date: 20160304
  Serious: Yes (Hospitalization)
  Sender: FDA-Public Use
  Company Number: DE-ABBVIE-15K-062-1468698-00

PATIENT
  Age: 42 Year
  Sex: Female

DRUGS (2)
  1. MORPHINE [Concomitant]
     Active Substance: MORPHINE
     Indication: PRODUCT USED FOR UNKNOWN INDICATION
  2. HUMIRA [Suspect]
     Active Substance: ADALIMUMAB
     Indication: CROHN^S DISEASE
     Route: 058
     Dates: start: 2005, end: 20150914

REACTIONS (8)
  - Seizure [Recovering/Resolving]
  - Gastrointestinal pain [Not Recovered/Not Resolved]
  - Abasia [Recovering/Resolving]
  - Central venous catheter removal [Not Recovered/Not Resolved]
  - Sepsis [Not Recovered/Not Resolved]
  - Gastrointestinal motility disorder [Not Recovered/Not Resolved]
  - Pyrexia [Recovered/Resolved]
  - Cardiac valve disease [Recovered/Resolved]

NARRATIVE: CASE EVENT DATE: 201509
